FAERS Safety Report 14369657 (Version 1)
Quarter: 2018Q1

REPORT INFORMATION
  Report Type: Spontaneous
  Country: US (occurrence: US)
  Receive Date: 20180110
  Receipt Date: 20180110
  Transmission Date: 20180509
  Serious: Yes (Other)
  Sender: FDA-Public Use
  Company Number: US-BEH-2018086507

PATIENT
  Sex: Female
  Weight: 161.9 kg

DRUGS (22)
  1. HIZENTRA [Suspect]
     Active Substance: HUMAN IMMUNOGLOBULIN G
     Indication: SECONDARY IMMUNODEFICIENCY
     Dosage: 50 MG/KG, QW
     Route: 058
     Dates: start: 20171214
  2. HIZENTRA [Suspect]
     Active Substance: HUMAN IMMUNOGLOBULIN G
     Indication: BLOOD IMMUNOGLOBULIN G INCREASED
  3. EPINEPHRINE. [Concomitant]
     Active Substance: EPINEPHRINE
  4. HUMALOG [Concomitant]
     Active Substance: INSULIN LISPRO
  5. FLONASE [Concomitant]
     Active Substance: FLUTICASONE PROPIONATE
  6. VALIUM [Concomitant]
     Active Substance: DIAZEPAM
  7. LASIX [Concomitant]
     Active Substance: FUROSEMIDE
  8. IPRATROPIUM/ALBUTEROL [Concomitant]
     Active Substance: ALBUTEROL\IPRATROPIUM
  9. GABAPENTIN. [Concomitant]
     Active Substance: GABAPENTIN
  10. VITAMIN E                          /00110501/ [Concomitant]
     Active Substance: TOCOPHEROL
  11. THEOPHYLLINE [Concomitant]
     Active Substance: THEOPHYLLINE ANHYDROUS
  12. DILAUDID [Concomitant]
     Active Substance: HYDROMORPHONE HYDROCHLORIDE
  13. ZYRTEC [Concomitant]
     Active Substance: CETIRIZINE HYDROCHLORIDE
  14. CRANBERRY                          /01512301/ [Concomitant]
     Active Substance: CRANBERRY
  15. MUCINEX COUGH [Concomitant]
     Active Substance: DEXTROMETHORPHAN HYDROBROMIDE\GUAIFENESIN
  16. HIZENTRA [Suspect]
     Active Substance: HUMAN IMMUNOGLOBULIN G
     Indication: BLOOD IMMUNOGLOBULIN G ABNORMAL
     Dosage: UNK
     Route: 058
  17. PLAVIX [Concomitant]
     Active Substance: CLOPIDOGREL BISULFATE
  18. ACETAMINOPHEN. [Concomitant]
     Active Substance: ACETAMINOPHEN
  19. LMX                                /00033401/ [Concomitant]
  20. TESSALON [Concomitant]
     Active Substance: BENZONATATE
  21. LANTUS [Concomitant]
     Active Substance: INSULIN GLARGINE
  22. DOCUSATE [Concomitant]
     Active Substance: DOCUSATE

REACTIONS (3)
  - Chest discomfort [Unknown]
  - Throat irritation [Unknown]
  - Hemiparesis [Unknown]
